FAERS Safety Report 24273710 (Version 1)
Quarter: 2024Q3

REPORT INFORMATION
  Report Type: Spontaneous
  Country: US (occurrence: US)
  Receive Date: 20240902
  Receipt Date: 20240902
  Transmission Date: 20241016
  Serious: No
  Sender: ASTELLAS
  Company Number: US-ASTELLAS-2023US036291

PATIENT
  Sex: Female

DRUGS (1)
  1. MYCAMINE [Suspect]
     Active Substance: MICAFUNGIN SODIUM
     Indication: Product used for unknown indication
     Dosage: 1MG/ML, UNKNOWN FREQ. (STRENGTH: 1MG/ML, 100ML BAG)
     Route: 065

REACTIONS (2)
  - Poor quality product administered [Unknown]
  - Wrong technique in product usage process [Unknown]
